FAERS Safety Report 11688264 (Version 2)
Quarter: 2015Q4

REPORT INFORMATION
  Report Type: Spontaneous
  Country: CN (occurrence: CN)
  Receive Date: 20151030
  Receipt Date: 20151103
  Transmission Date: 20160304
  Serious: Yes (Other)
  Sender: FDA-Public Use
  Company Number: PHHY2015CN140948

PATIENT
  Age: 76 Year
  Sex: Female
  Weight: 55 kg

DRUGS (5)
  1. MIACALCIC [Suspect]
     Active Substance: CALCITONIN SALMON
     Indication: OSTEOPOROSIS
  2. ACLASTA [Suspect]
     Active Substance: ZOLEDRONIC ACID
     Indication: OSTEOPOROSIS
  3. MIACALCIC [Suspect]
     Active Substance: CALCITONIN SALMON
     Indication: RADIUS FRACTURE
     Route: 065
  4. ACLASTA [Suspect]
     Active Substance: ZOLEDRONIC ACID
     Indication: RADIUS FRACTURE
     Dosage: 500 ML SALINE WATER
     Route: 042
     Dates: start: 20151021
  5. HEPARIN SODIUM. [Concomitant]
     Active Substance: HEPARIN SODIUM
     Indication: PRODUCT USED FOR UNKNOWN INDICATION
     Route: 065

REACTIONS (8)
  - Fibrin D dimer increased [Unknown]
  - C-reactive protein increased [Unknown]
  - Pleural effusion [Recovering/Resolving]
  - Cardiac failure [Recovering/Resolving]
  - Lung infection [Recovering/Resolving]
  - Chest discomfort [Unknown]
  - Burning sensation [Unknown]
  - Pyrexia [Unknown]

NARRATIVE: CASE EVENT DATE: 20151022
